FAERS Safety Report 12314945 (Version 2)
Quarter: 2016Q2

REPORT INFORMATION
  Report Type: Spontaneous
  Country: US (occurrence: US)
  Receive Date: 20160428
  Receipt Date: 20160513
  Transmission Date: 20160815
  Serious: Yes (Death, Hospitalization)
  Sender: FDA-Public Use
  Company Number: US-INCYTE CORPORATION-2016IN002363

PATIENT
  Age: 63 Year
  Sex: Male

DRUGS (1)
  1. JAKAFI [Suspect]
     Active Substance: RUXOLITINIB
     Indication: POLYCYTHAEMIA VERA
     Dosage: 20 MG, AFTER DIALYSIS 3X PER WEEK
     Route: 048

REACTIONS (4)
  - Death [Fatal]
  - International normalised ratio increased [Unknown]
  - Haemoglobin decreased [Unknown]
  - Hypotension [Unknown]

NARRATIVE: CASE EVENT DATE: 2016
